FAERS Safety Report 5781001-8 (Version None)
Quarter: 2008Q2

REPORT INFORMATION
  Report Type: 
  Country: None (occurrence: None)
  Receive Date: 20080618
  Receipt Date: 20080605
  Transmission Date: 20081010
  Serious: Yes (Hospitalization)
  Sender: FDA-Public Use
  Company Number: 2008AL004952

PATIENT
  Age: 61 Year
  Sex: Female
  Weight: 76.2043 kg

DRUGS (7)
  1. DIGOXIN [Suspect]
     Indication: ATRIAL FIBRILLATION
  2. NEXIUM [Concomitant]
  3. ASPIRIN [Concomitant]
  4. MULTI-VITAMIN [Concomitant]
  5. LASIX [Concomitant]
  6. CALCIUM [Concomitant]
  7. METFORMIN [Concomitant]

REACTIONS (3)
  - ASTHENIA [None]
  - MALAISE [None]
  - NAUSEA [None]
